FAERS Safety Report 5262560-0 (Version None)
Quarter: 2007Q1

REPORT INFORMATION
  Report Type: 
  Country: None (occurrence: None)
  Receive Date: 20070309
  Receipt Date: 20070309
  Transmission Date: 20070707
  Serious: No
  Sender: FDA-Public Use
  Company Number: None

PATIENT
  Age: 64 Year
  Sex: Female
  Weight: 67 kg

DRUGS (13)
  1. CIPRO [Suspect]
     Indication: INTRASPINAL ABSCESS
     Dosage: 400 MG Q 24H IV
     Route: 042
  2. CIPRO [Suspect]
     Indication: PSEUDOMONAS INFECTION
     Dosage: 400 MG Q 24H IV
     Route: 042
  3. ARANESP [Concomitant]
  4. DEMEROL [Concomitant]
  5. DURAGESIC-100 [Concomitant]
  6. LEXAPRO [Concomitant]
  7. LOPRESSOR [Concomitant]
  8. PHOSLO [Concomitant]
  9. RENAGEL [Concomitant]
  10. TOBRAMYCIN [Concomitant]
  11. NORCO [Concomitant]
  12. SOMA [Concomitant]
  13. ZOFRAN [Concomitant]

REACTIONS (2)
  - AGITATION [None]
  - HALLUCINATION [None]
